FAERS Safety Report 15559489 (Version 1)
Quarter: 2018Q4

REPORT INFORMATION
  Report Type: Spontaneous
  Country: US (occurrence: US)
  Receive Date: 20181022
  Receipt Date: 20181022
  Transmission Date: 20190205
  Serious: Yes (Hospitalization)
  Sender: FDA-Public Use
  Company Number: None

PATIENT

DRUGS (1)
  1. VINCRISTINE SULFATE. [Suspect]
     Active Substance: VINCRISTINE SULFATE
     Dates: end: 20160802

REACTIONS (7)
  - Pancytopenia [None]
  - Fatigue [None]
  - Packed red blood cell transfusion [None]
  - Abscess [None]
  - Staphylococcal infection [None]
  - Myelodysplastic syndrome [None]
  - Headache [None]

NARRATIVE: CASE EVENT DATE: 20181009
